FAERS Safety Report 8454903 (Version 2)
Quarter: 2013Q4

REPORT INFORMATION
  Report Type: Spontaneous
  Country: US (occurrence: US)
  Receive Date: 20120312
  Receipt Date: 20131023
  Transmission Date: 20140711
  Serious: Yes (Other)
  Sender: FDA-Public Use
  Company Number: US-ROCHE-791234

PATIENT
  Sex: Female
  Weight: 57.2 kg

DRUGS (2)
  1. ACCUTANE [Suspect]
     Indication: ACNE
     Route: 065
  2. ACCUTANE [Suspect]
     Route: 065
     Dates: start: 20040309, end: 20040609

REACTIONS (4)
  - Colitis ulcerative [Unknown]
  - Colitis microscopic [Unknown]
  - Autoimmune thyroiditis [Unknown]
  - Inflammatory bowel disease [Unknown]
